FAERS Safety Report 9035989 (Version 1)
Quarter: 2013Q1

REPORT INFORMATION
  Report Type: Report from Study
  Country: US (occurrence: US)
  Receive Date: 20130129
  Receipt Date: 20130129
  Transmission Date: 20140127
  Serious: No
  Sender: FDA-Public Use
  Company Number: US-ABBOTT-12P-163-0919100-00

PATIENT
  Age: 61 Year
  Sex: Female

DRUGS (9)
  1. HUMIRA 40 MG/0.8 ML PEN [Suspect]
     Indication: RHEUMATOID ARTHRITIS
     Dates: start: 20120118
  2. PLAQUENIL [Concomitant]
     Indication: PRODUCT USED FOR UNKNOWN INDICATION
  3. SULINDAC [Concomitant]
     Indication: INFLAMMATION
  4. SULINDAC [Concomitant]
     Indication: PAIN
  5. FOLIC ACID [Concomitant]
     Indication: PRODUCT USED FOR UNKNOWN INDICATION
     Dosage: DAILY
  6. TUMS [Concomitant]
     Indication: GASTRIC DISORDER
     Dosage: AS REQUIRED
  7. EVOXAC [Concomitant]
     Indication: ILL-DEFINED DISORDER
     Dosage: THREE TIMES DAILY
     Route: 048
  8. FLEXERIL [Concomitant]
     Indication: MUSCLE DISORDER
  9. METHOTREXATE [Concomitant]
     Indication: PRODUCT USED FOR UNKNOWN INDICATION
     Dosage: 2.5 MG X 2 TABS WEEKLY

REACTIONS (2)
  - Injection site pain [Recovered/Resolved]
  - White blood cell count decreased [Unknown]
